FAERS Safety Report 25988294 (Version 1)
Quarter: 2025Q4

REPORT INFORMATION
  Report Type: Spontaneous
  Country: US (occurrence: US)
  Receive Date: 20251103
  Receipt Date: 20251103
  Transmission Date: 20260117
  Serious: No
  Sender: Kenvue
  Company Number: US-KENVUE-20251009199

PATIENT
  Sex: Female

DRUGS (10)
  1. TYLENOL [Suspect]
     Active Substance: ACETAMINOPHEN
     Indication: Migraine
     Dosage: UNK UNK, AS NEEDED
     Route: 048
     Dates: start: 20240926
  2. BENADRYL [Suspect]
     Active Substance: DIPHENHYDRAMINE HYDROCHLORIDE
     Indication: Migraine
     Dosage: UNK UNK, AS NEEDED
     Route: 065
  3. NURTEC ODT [Concomitant]
     Active Substance: RIMEGEPANT SULFATE
     Indication: Migraine
     Dosage: 75 MILLIGRAM, AS NEEDED
     Route: 048
     Dates: start: 2022, end: 20240921
  4. REGLAN [Concomitant]
     Active Substance: METOCLOPRAMIDE HYDROCHLORIDE
     Indication: Migraine
     Dosage: UNK, AS NEEDED
     Route: 048
     Dates: start: 20240923
  5. ELETRIPTAN [Concomitant]
     Active Substance: ELETRIPTAN
     Indication: Migraine
     Dosage: 40 MILLIGRAM, AS NEEDED
     Route: 065
  6. Dexamethosone [Concomitant]
     Indication: Migraine
     Dosage: 5-8 MG
     Route: 065
  7. FLEXERIL [Concomitant]
     Active Substance: CYCLOBENZAPRINE HYDROCHLORIDE
     Indication: Migraine
     Dosage: 5 MILLIGRAM
     Route: 065
  8. LIDOCAINE [Concomitant]
     Active Substance: LIDOCAINE
     Indication: Migraine
     Dosage: 9 MILLILITER
     Route: 065
  9. QULIPTA [Concomitant]
     Active Substance: ATOGEPANT
     Indication: Prophylaxis
     Dosage: 60 MILLIGRAM, ONCE A DAY
     Route: 048
     Dates: start: 20240523, end: 20240923
  10. BOTOX [Concomitant]
     Active Substance: ONABOTULINUMTOXINA
     Indication: Prophylaxis
     Dosage: 155 UNIT, Q3M
     Route: 065
     Dates: start: 20250116

REACTIONS (2)
  - Exposure during pregnancy [Unknown]
  - Off label use [Unknown]
